FAERS Safety Report 6795956-6 (Version None)
Quarter: 2010Q2

REPORT INFORMATION
  Report Type: 
  Country: None (occurrence: None)
  Receive Date: 20100625
  Receipt Date: 20100615
  Transmission Date: 20101027
  Serious: Yes (Disabling)
  Sender: FDA-Public Use
  Company Number: B0661900A

PATIENT
  Age: 27 Year
  Sex: Male

DRUGS (2)
  1. SEROXAT [Suspect]
     Dosage: 25MG PER DAY
     Route: 048
     Dates: start: 20100510
  2. ABILIFY [Concomitant]
     Route: 048

REACTIONS (2)
  - PAIN [None]
  - PRIAPISM [None]
